FAERS Safety Report 6133445-2 (Version None)
Quarter: 2009Q1

REPORT INFORMATION
  Report Type: 
  Country: None (occurrence: None)
  Receive Date: 20090326
  Receipt Date: 20090317
  Transmission Date: 20090719
  Serious: Yes (Other)
  Sender: FDA-Public Use
  Company Number: PHHY2009GB06045

PATIENT
  Sex: Female

DRUGS (4)
  1. CLOZARIL [Suspect]
     Indication: SCHIZOPHRENIA
     Dosage: 250 MG, QD
     Route: 048
     Dates: start: 20040326
  2. CLOZARIL [Suspect]
     Dosage: 300 MG, QD
     Route: 048
  3. CLOZARIL [Suspect]
     Dosage: 200 MG, QD
     Route: 048
  4. CLOZARIL [Suspect]
     Dosage: 150 MG, UNK
     Route: 048

REACTIONS (2)
  - ANTIPSYCHOTIC DRUG LEVEL INCREASED [None]
  - ELECTROCARDIOGRAM QT PROLONGED [None]
